FAERS Safety Report 6371669-X (Version None)
Quarter: 2009Q3

REPORT INFORMATION
  Report Type: 
  Country: None (occurrence: None)
  Receive Date: 20090923
  Receipt Date: 20080327
  Transmission Date: 20100115
  Serious: Yes (Hospitalization, Other)
  Sender: FDA-Public Use
  Company Number: US-ASTRAZENECA-2008UW01184

PATIENT
  Age: 536 Month
  Sex: Female
  Weight: 74.8 kg

DRUGS (19)
  1. SEROQUEL [Suspect]
     Indication: ANXIETY
     Dosage: 100 - 300 MG
     Route: 048
     Dates: start: 20030101, end: 20061201
  2. SEROQUEL [Suspect]
     Dosage: 50-250 MG
     Route: 048
     Dates: start: 20030723, end: 20040330
  3. SEROQUEL [Suspect]
     Dosage: 100-600 MG
     Route: 048
     Dates: start: 20040430
  4. VICODIN [Concomitant]
     Dosage: 5/500, 1 TABLET IN EVENING
     Dates: start: 20021125
  5. TRAMADOL HCL [Concomitant]
     Dosage: 500 MG IN EVENING
     Dates: start: 20030817
  6. PAXIL [Concomitant]
     Dosage: 20-40 MG
     Dates: start: 20030723
  7. ATIVAN [Concomitant]
     Indication: NERVOUS SYSTEM DISORDER
     Dosage: 0.5-2 MG
     Route: 048
     Dates: start: 20030829
  8. PHENOBARBITAL [Concomitant]
     Indication: CONVULSION
     Dosage: 64.8 MG - 129.6 MG
     Dates: start: 20030723
  9. FLOVENT [Concomitant]
     Dosage: 110 MCG, 1 PUFF TWICE A DAY
     Dates: start: 20040419
  10. QUININE SULFATE [Concomitant]
     Dates: start: 20040514
  11. NAPROXEN [Concomitant]
     Dates: start: 20040514
  12. GEODON [Concomitant]
     Dates: start: 20040330
  13. REGULAR INSULIN [Concomitant]
     Dosage: 15 UNITS
     Route: 058
     Dates: start: 20050214
  14. AVANDIA [Concomitant]
     Dates: start: 20050214
  15. PROZAC [Concomitant]
     Dosage: 20-40 MG
     Dates: start: 20040330
  16. DILANTIN [Concomitant]
     Indication: CONVULSION
     Dosage: 100-300 MG
     Dates: start: 20030723
  17. ZOLOFT [Concomitant]
     Dates: end: 20030723
  18. GLUCOPHAGE [Concomitant]
     Dates: start: 20050214
  19. TRAZODONE [Concomitant]
     Dates: start: 20030723

REACTIONS (6)
  - BLOOD GLUCOSE DECREASED [None]
  - DIABETES MELLITUS [None]
  - DIABETES MELLITUS INADEQUATE CONTROL [None]
  - HYPERGLYCAEMIA [None]
  - TYPE 2 DIABETES MELLITUS [None]
  - WEIGHT INCREASED [None]
